FAERS Safety Report 19027257 (Version 3)
Quarter: 2021Q3

REPORT INFORMATION
  Report Type: Spontaneous
  Country: JP (occurrence: JP)
  Receive Date: 20210318
  Receipt Date: 20210706
  Transmission Date: 20211014
  Serious: Yes (Hospitalization, Other)
  Sender: FDA-Public Use
  Company Number: JP-DSJP-DSJ-2020-127578

PATIENT

DRUGS (1)
  1. ENHERTU [Suspect]
     Active Substance: FAM-TRASTUZUMAB DERUXTECAN-NXKI
     Indication: BREAST CANCER RECURRENT
     Dosage: 400 MG, ONCE EVERY 3 WK
     Route: 041
     Dates: start: 20200902, end: 20201202

REACTIONS (5)
  - Alopecia [Unknown]
  - Constipation [Recovering/Resolving]
  - Nausea [Unknown]
  - Diarrhoea [Unknown]
  - Cerebral haemorrhage [Recovering/Resolving]

NARRATIVE: CASE EVENT DATE: 20210111
